FAERS Safety Report 5416460-3 (Version None)
Quarter: 2007Q3

REPORT INFORMATION
  Report Type: 
  Country: None (occurrence: None)
  Receive Date: 20070816
  Receipt Date: 20070808
  Transmission Date: 20080115
  Serious: Yes (Hospitalization)
  Sender: FDA-Public Use
  Company Number: FR-BAYER-200710477BFR

PATIENT
  Age: 21 Year
  Sex: Female

DRUGS (14)
  1. IZILOX [Suspect]
     Indication: TUBERCULOSIS
     Route: 048
     Dates: start: 20070526, end: 20070529
  2. MYAMBUTOL [Concomitant]
     Indication: TUBERCULOSIS
     Dosage: UNIT DOSE: 400 MG
     Route: 048
     Dates: start: 20070510, end: 20070529
  3. MYAMBUTOL [Concomitant]
     Dosage: UNIT DOSE: 400 MG
     Route: 048
     Dates: start: 20070611, end: 20070617
  4. MYAMBUTOL [Concomitant]
     Dosage: UNIT DOSE: 400 MG
     Route: 048
     Dates: start: 20070618
  5. PIRILENE [Concomitant]
     Indication: TUBERCULOSIS
     Dosage: UNIT DOSE: 500 MG
     Route: 048
     Dates: start: 20070611, end: 20070617
  6. PIRILENE [Concomitant]
     Dosage: UNIT DOSE: 500 MG
     Route: 048
     Dates: start: 20070618
  7. PIRILENE [Concomitant]
     Dosage: UNIT DOSE: 500 MG
     Route: 048
     Dates: start: 20070526, end: 20070529
  8. RIFATER [Concomitant]
     Indication: TUBERCULOSIS
     Route: 048
     Dates: start: 20070510, end: 20070526
  9. VIBRAMYCINE [Concomitant]
     Indication: TUBERCULOSIS
     Route: 048
     Dates: start: 20070622
  10. VIBRAMYCINE [Concomitant]
     Dosage: TOTAL DAILY DOSE: 200 MG  UNIT DOSE: 100 MG
     Route: 048
     Dates: start: 20070510, end: 20070529
  11. RIMIFON [Concomitant]
     Indication: TUBERCULOSIS
     Dates: start: 20070526, end: 20070529
  12. RIMIFON [Concomitant]
     Dates: start: 20070618
  13. RIMIFON [Concomitant]
     Dates: start: 20070611, end: 20070617
  14. STREPTOMYCINE [Concomitant]
     Indication: TUBERCULOSIS
     Route: 030
     Dates: start: 20070611

REACTIONS (5)
  - ALANINE AMINOTRANSFERASE INCREASED [None]
  - ASPARTATE AMINOTRANSFERASE INCREASED [None]
  - GAMMA-GLUTAMYLTRANSFERASE INCREASED [None]
  - HAEMOLYTIC ANAEMIA [None]
  - HEPATIC FAILURE [None]
